FAERS Safety Report 22336106 (Version 1)
Quarter: 2023Q2

REPORT INFORMATION
  Report Type: Spontaneous
  Country: US (occurrence: None)
  Receive Date: 20230518
  Receipt Date: 20230518
  Transmission Date: 20230722
  Serious: No
  Sender: FDA-Public Use
  Company Number: US-ROCHE-3211835

PATIENT
  Sex: Female

DRUGS (14)
  1. ACTEMRA [Suspect]
     Active Substance: TOCILIZUMAB
     Indication: Rheumatoid arthritis
     Route: 058
  2. ACTEMRA [Suspect]
     Active Substance: TOCILIZUMAB
  3. ACTEMRA [Suspect]
     Active Substance: TOCILIZUMAB
  4. MIRABEGRON [Concomitant]
     Active Substance: MIRABEGRON
  5. ACCUPRIL [Concomitant]
     Active Substance: QUINAPRIL HYDROCHLORIDE
  6. ALLOPURINOL [Concomitant]
     Active Substance: ALLOPURINOL
  7. AMBIEN [Concomitant]
     Active Substance: ZOLPIDEM TARTRATE
  8. AMLODIPINE [Concomitant]
     Active Substance: AMLODIPINE BESYLATE
  9. CHLORTHALIDONE [Concomitant]
     Active Substance: CHLORTHALIDONE
  10. LEVOTHYROXINE [Concomitant]
     Active Substance: LEVOTHYROXINE
  11. METOPROLOL [Concomitant]
     Active Substance: METOPROLOL
  12. OMEPRAZOLE [Concomitant]
     Active Substance: OMEPRAZOLE
  13. OXYBUTYNIN [Concomitant]
     Active Substance: OXYBUTYNIN
  14. ZETIA [Concomitant]
     Active Substance: EZETIMIBE

REACTIONS (2)
  - Osteoarthritis [Unknown]
  - Back pain [Unknown]
